FAERS Safety Report 5367970-9 (Version None)
Quarter: 2007Q2

REPORT INFORMATION
  Report Type: 
  Country: None (occurrence: None)
  Receive Date: 20070622
  Receipt Date: 20070611
  Transmission Date: 20071010
  Serious: Yes (Other)
  Sender: FDA-Public Use
  Company Number: US-PFIZER INC-2007047671

PATIENT
  Sex: Male

DRUGS (3)
  1. GEODON [Suspect]
  2. PAXIL [Suspect]
     Indication: DIZZINESS
     Route: 048
     Dates: start: 20040101
  3. TAGAMET [Suspect]

REACTIONS (10)
  - ADVERSE DRUG REACTION [None]
  - ADVERSE EVENT [None]
  - ANXIETY [None]
  - DRUG DETOXIFICATION [None]
  - HAEMORRHAGE [None]
  - HYPERPLASIA [None]
  - INCOHERENT [None]
  - LEUKOPENIA [None]
  - LIVER DISORDER [None]
  - T-LYMPHOCYTE COUNT DECREASED [None]
